FAERS Safety Report 5410154-6 (Version None)
Quarter: 2007Q3

REPORT INFORMATION
  Report Type: 
  Country: None (occurrence: None)
  Receive Date: 20070713
  Receipt Date: 20070405
  Transmission Date: 20080115
  Serious: No
  Sender: FDA-Public Use
  Company Number: 2007SP001233

PATIENT
  Age: 78 Year
  Sex: Female
  Weight: 67.586 kg

DRUGS (4)
  1. LUNESTA [Suspect]
     Indication: INSOMNIA
     Dosage: 3 MG;HS;ORAL; 2 MG;HS;ORAL
     Route: 048
     Dates: start: 20070323, end: 20070401
  2. LUNESTA [Suspect]
     Indication: INSOMNIA
     Dosage: 3 MG;HS;ORAL; 2 MG;HS;ORAL
     Route: 048
     Dates: start: 20070302
  3. AMBIEN [Concomitant]
  4. INSULIN [Concomitant]

REACTIONS (1)
  - MIDDLE INSOMNIA [None]
